FAERS Safety Report 7111096-0 (Version None)
Quarter: 2010Q4

REPORT INFORMATION
  Report Type: 
  Country: None (occurrence: None)
  Receive Date: 20101118
  Receipt Date: 20101108
  Transmission Date: 20110411
  Serious: Yes (Disabling)
  Sender: FDA-Public Use
  Company Number: DK-US-EMD SERONO, INC.-230001M10DNK

PATIENT
  Sex: Female
  Weight: 60 kg

DRUGS (1)
  1. REBIF [Suspect]
     Indication: MULTIPLE SCLEROSIS
     Route: 058
     Dates: start: 20050711, end: 20100128

REACTIONS (2)
  - IMPAIRED WORK ABILITY [None]
  - NECROSIS [None]
